FAERS Safety Report 8501869-1 (Version None)
Quarter: 2012Q3

REPORT INFORMATION
  Report Type: 
  Country: None (occurrence: None)
  Receive Date: 20120711
  Receipt Date: 20120705
  Transmission Date: 20120928
  Serious: Yes (Disabling, Other)
  Sender: FDA-Public Use
  Company Number: PHHY2012CL058506

PATIENT
  Sex: Male

DRUGS (2)
  1. CLOZAPINE [Suspect]
     Indication: SCHIZOPHRENIA
     Dosage: 50 MG, QD
     Route: 048
     Dates: start: 20120424
  2. PROLOPA [Concomitant]
     Dosage: 875 MG (250 MG /MORNING, 250 MG /EVENING, 375 MG/NIGHT)

REACTIONS (10)
  - TREMOR [None]
  - HALLUCINATION [None]
  - DYSARTHRIA [None]
  - SOMNOLENCE [None]
  - DYSSTASIA [None]
  - FALL [None]
  - STRESS [None]
  - ABASIA [None]
  - BALANCE DISORDER [None]
  - DELIRIUM [None]
